FAERS Safety Report 13703009 (Version 5)
Quarter: 2017Q4

REPORT INFORMATION
  Report Type: Spontaneous
  Country: JP (occurrence: JP)
  Receive Date: 20170629
  Receipt Date: 20171004
  Transmission Date: 20180320
  Serious: Yes (Hospitalization, Congenital Anomaly)
  Sender: FDA-Public Use
  Company Number: JP-ASTRAZENECA-2017SE66631

PATIENT
  Age: 29494 Day
  Sex: Female
  Weight: 40 kg

DRUGS (15)
  1. RISPERIDONE. [Concomitant]
     Active Substance: RISPERIDONE
     Indication: DELIRIUM
     Route: 048
  2. TAGRISSO [Suspect]
     Active Substance: OSIMERTINIB
     Indication: NON-SMALL CELL LUNG CANCER
     Route: 048
     Dates: start: 20170327, end: 20170621
  3. LOXOPROFEN [Suspect]
     Active Substance: LOXOPROFEN
     Indication: NON-SMALL CELL LUNG CANCER
     Route: 048
  4. DECADRON [Concomitant]
     Active Substance: DEXAMETHASONE
     Indication: NON-SMALL CELL LUNG CANCER
     Route: 048
     Dates: start: 20170504
  5. DECADRON [Concomitant]
     Active Substance: DEXAMETHASONE
     Indication: NON-SMALL CELL LUNG CANCER
     Dosage: 4 MG, NUMBER OF SEPARATE DOSAGES UNKNOWN
     Route: 048
     Dates: end: 20170503
  6. DIAZEPAM. [Suspect]
     Active Substance: DIAZEPAM
     Indication: ANXIETY DISORDER
     Route: 048
     Dates: end: 20170621
  7. LIMAPROST ALFADEX [Concomitant]
     Active Substance: LIMAPROST
     Indication: SPINAL COLUMN STENOSIS
     Route: 048
  8. METGLUCO [Concomitant]
     Active Substance: METFORMIN HYDROCHLORIDE
     Indication: DIABETES MELLITUS
     Route: 048
     Dates: start: 200302
  9. TRAZODONE [Concomitant]
     Active Substance: TRAZODONE HYDROCHLORIDE
     Indication: DELIRIUM
     Route: 048
  10. MORPHES [Concomitant]
     Indication: NON-SMALL CELL LUNG CANCER
     Route: 048
     Dates: start: 201705
  11. OPSO [Concomitant]
     Active Substance: MORPHINE HYDROCHLORIDE
     Indication: NON-SMALL CELL LUNG CANCER
     Dosage: 5.0MG AS REQUIRED
     Route: 048
     Dates: start: 20170502
  12. SULPIRIDE [Suspect]
     Active Substance: SULPIRIDE
     Indication: ANXIETY DISORDER
     Route: 048
     Dates: end: 20170621
  13. MAGNESIUM OXIDE. [Concomitant]
     Active Substance: MAGNESIUM OXIDE
     Indication: NON-SMALL CELL LUNG CANCER
     Route: 048
  14. LANSOPRAZOLE. [Concomitant]
     Active Substance: LANSOPRAZOLE
     Indication: NON-SMALL CELL LUNG CANCER
     Route: 048
  15. MORPHES [Concomitant]
     Indication: NON-SMALL CELL LUNG CANCER
     Dosage: 20 MG, NUMBER OF SEPARATE DOSAGES UNKNOWN
     Route: 048
     Dates: start: 20170502, end: 201705

REACTIONS (5)
  - Disorientation [Recovering/Resolving]
  - Decreased appetite [Recovered/Resolved]
  - Malaise [Recovered/Resolved]
  - Rhabdomyolysis [Recovered/Resolved]
  - Pneumothorax [Recovered/Resolved]

NARRATIVE: CASE EVENT DATE: 20170502
